FAERS Safety Report 12480374 (Version 1)
Quarter: 2016Q2

REPORT INFORMATION
  Report Type: Spontaneous
  Country: US (occurrence: None)
  Receive Date: 20160617
  Receipt Date: 20160617
  Transmission Date: 20160815
  Serious: Yes (Other)
  Sender: FDA-Public Use
  Company Number: None

PATIENT
  Age: 51 Year
  Sex: Female
  Weight: 52.16 kg

DRUGS (1)
  1. ADVANCED EYE RELIEF/ DRY EYE/ REJUVENATION LUBRICANT [Suspect]
     Active Substance: PROPYLENE GLYCOL
     Indication: DRY EYE
     Route: 031
     Dates: start: 20160614, end: 20160616

REACTIONS (2)
  - Vertigo [None]
  - Abdominal discomfort [None]

NARRATIVE: CASE EVENT DATE: 20160616
